FAERS Safety Report 8814824 (Version 1)
Quarter: 2012Q4

REPORT INFORMATION
  Report Type: Report from Study
  Country: US (occurrence: US)
  Receive Date: 20120928
  Receipt Date: 20120928
  Transmission Date: 20130627
  Serious: Yes (Hospitalization, Other)
  Sender: FDA-Public Use
  Company Number: US-PFIZER INC-2012238134

PATIENT
  Age: 12 Year
  Sex: Male
  Weight: 35.7 kg

DRUGS (3)
  1. FLAGYL [Suspect]
     Indication: CLOSTRIDIAL INFECTION
     Dosage: UNK
     Route: 048
     Dates: start: 20120418
  2. REMICADE [Suspect]
     Dosage: UNK
     Route: 042
     Dates: start: 20111128
  3. IRON [Concomitant]

REACTIONS (1)
  - Dehydration [Recovered/Resolved]
